FAERS Safety Report 21398362 (Version 1)
Quarter: 2022Q3

REPORT INFORMATION
  Report Type: Spontaneous
  Country: IR (occurrence: IR)
  Receive Date: 20220930
  Receipt Date: 20220930
  Transmission Date: 20221027
  Serious: Yes (Hospitalization)
  Sender: FDA-Public Use
  Company Number: IR-MLMSERVICE-20220915-3795120-1

PATIENT
  Age: 51 Year
  Sex: Male

DRUGS (19)
  1. PREDNISOLONE [Suspect]
     Active Substance: PREDNISOLONE
     Indication: Abdominal pain
     Route: 065
     Dates: start: 2000
  2. PREDNISOLONE [Suspect]
     Active Substance: PREDNISOLONE
     Dosage: PREDNISOLONE PLUS ADALIMUMAB
     Route: 065
     Dates: start: 2017
  3. INFLIXIMAB [Suspect]
     Active Substance: INFLIXIMAB
     Indication: Intestinal fistula infection
     Route: 065
     Dates: start: 200906, end: 2017
  4. ADALIMUMAB [Suspect]
     Active Substance: ADALIMUMAB
     Indication: Intestinal mass
     Route: 065
     Dates: start: 2017
  5. MERCAPTOPURINE [Suspect]
     Active Substance: MERCAPTOPURINE
     Indication: Intestinal fistula infection
     Route: 065
     Dates: start: 200906
  6. AZATHIOPRINE [Suspect]
     Active Substance: AZATHIOPRINE
     Indication: Immunosuppressant drug therapy
     Route: 065
     Dates: start: 2003
  7. METRONIDAZOLE [Concomitant]
     Active Substance: METRONIDAZOLE
     Indication: Abscess intestinal
     Route: 065
     Dates: start: 200209
  8. METRONIDAZOLE [Concomitant]
     Active Substance: METRONIDAZOLE
     Indication: Bacterial infection
     Dates: start: 2014
  9. METRONIDAZOLE [Concomitant]
     Active Substance: METRONIDAZOLE
     Indication: Antibiotic therapy
     Dates: start: 200303
  10. MESALAMINE [Concomitant]
     Active Substance: MESALAMINE
     Indication: Abdominal pain
     Dates: start: 2000
  11. MESALAMINE [Concomitant]
     Active Substance: MESALAMINE
     Indication: Gastric disorder
     Dates: start: 2006
  12. CEFOTAXIME [Concomitant]
     Active Substance: CEFOTAXIME SODIUM
     Indication: Antibiotic therapy
     Dates: start: 2014
  13. CEFTRIAXONE [Concomitant]
     Active Substance: CEFTRIAXONE
     Indication: Bacterial infection
     Route: 042
     Dates: start: 200303
  14. CIPROFLOXACIN [Concomitant]
     Active Substance: CIPROFLOXACIN
     Indication: Abscess intestinal
     Route: 065
     Dates: start: 200209
  15. CIPROFLOXACIN [Concomitant]
     Active Substance: CIPROFLOXACIN
     Indication: Infection prophylaxis
     Route: 065
     Dates: start: 2014
  16. GEMIFLOXACIN [Concomitant]
     Active Substance: GEMIFLOXACIN
     Indication: Bacterial infection
     Dates: start: 200303
  17. CEFTAZIDIME [Concomitant]
     Active Substance: CEFTAZIDIME
     Indication: Infection prophylaxis
     Dates: start: 2014
  18. KETOROLAC [Concomitant]
     Active Substance: KETOROLAC TROMETHAMINE
     Indication: Gastric disorder
     Dates: start: 2006
  19. LEVOFLOXACIN [Concomitant]
     Active Substance: LEVOFLOXACIN
     Indication: Antibiotic therapy
     Dates: start: 2014

REACTIONS (2)
  - Klebsiella infection [Recovered/Resolved]
  - Urinary tract infection [Recovered/Resolved]

NARRATIVE: CASE EVENT DATE: 20170101
